FAERS Safety Report 21183933 (Version 2)
Quarter: 2022Q3

REPORT INFORMATION
  Report Type: Spontaneous
  Country: MY (occurrence: MY)
  Receive Date: 20220808
  Receipt Date: 20220909
  Transmission Date: 20221026
  Serious: Yes (Other)
  Sender: FDA-Public Use
  Company Number: MY-ALKEM LABORATORIES LIMITED-MY-ALKEM-2022-08103

PATIENT
  Sex: Female

DRUGS (1)
  1. TRIAMCINOLONE ACETONIDE [Suspect]
     Active Substance: TRIAMCINOLONE ACETONIDE
     Indication: Iridocyclitis
     Dosage: 20 MG (0.5 ML)
     Route: 057

REACTIONS (3)
  - Conjunctival ulcer [Recovered/Resolved]
  - Lipoatrophy [Unknown]
  - Retinal depigmentation [Unknown]
